FAERS Safety Report 5630577-X (Version None)
Quarter: 2008Q1

REPORT INFORMATION
  Report Type: 
  Country: None (occurrence: None)
  Receive Date: 20080219
  Receipt Date: 20080211
  Transmission Date: 20080703
  Serious: Yes (Hospitalization, Other)
  Sender: FDA-Public Use
  Company Number: B0382056A

PATIENT
  Age: 66 Year
  Sex: Male

DRUGS (6)
  1. LAMICTAL [Suspect]
     Indication: BIPOLAR I DISORDER
     Route: 048
     Dates: start: 20041209, end: 20050103
  2. TOFRANIL [Concomitant]
     Dates: start: 19870101
  3. PLENUR [Concomitant]
     Dates: start: 19870101
  4. DISTRANEURINE [Concomitant]
     Dates: start: 19870101
  5. NOCTAMID [Concomitant]
  6. TRANXILIUM [Concomitant]

REACTIONS (64)
  - ALOPECIA [None]
  - ATROPHY OF TONGUE PAPILLAE [None]
  - BLINDNESS [None]
  - BRONCHITIS [None]
  - CATARACT [None]
  - CHEILOSIS [None]
  - CLEFT LIP [None]
  - COMA [None]
  - CONJUNCTIVAL HYPERAEMIA [None]
  - CONJUNCTIVITIS [None]
  - COUGH [None]
  - DYSGEUSIA [None]
  - DYSPHAGIA [None]
  - ERECTILE DYSFUNCTION [None]
  - FEELING ABNORMAL [None]
  - FIBROSIS [None]
  - GAIT DISTURBANCE [None]
  - GENITAL RASH [None]
  - HEADACHE [None]
  - HYPERKERATOSIS [None]
  - INCONTINENCE [None]
  - INCREASED UPPER AIRWAY SECRETION [None]
  - INFLUENZA [None]
  - INSOMNIA [None]
  - LIP HAEMORRHAGE [None]
  - LOSS OF CONSCIOUSNESS [None]
  - LOSS OF LIBIDO [None]
  - MADAROSIS [None]
  - MALAISE [None]
  - MOUTH HAEMORRHAGE [None]
  - MOUTH ULCERATION [None]
  - MUCOSAL ULCERATION [None]
  - MUCOUS MEMBRANE DISORDER [None]
  - NASOPHARYNGITIS [None]
  - OCULAR NEOPLASM [None]
  - ODYNOPHAGIA [None]
  - ONYCHOMYCOSIS [None]
  - ORAL DISORDER [None]
  - OROPHARYNGEAL CANDIDIASIS [None]
  - PARALYSIS [None]
  - PENILE DISCHARGE [None]
  - PHARYNGOLARYNGEAL PAIN [None]
  - PHIMOSIS [None]
  - PYREXIA [None]
  - RASH [None]
  - RASH MACULAR [None]
  - RASH PAPULAR [None]
  - RESPIRATORY TRACT INFECTION [None]
  - RHINORRHOEA [None]
  - SALIVARY GLAND DISORDER [None]
  - SALIVARY HYPERSECRETION [None]
  - SKIN DISCOLOURATION [None]
  - SKIN EXFOLIATION [None]
  - SKIN LESION [None]
  - SKIN ULCER [None]
  - SOMNOLENCE [None]
  - STEVENS-JOHNSON SYNDROME [None]
  - STOMATITIS [None]
  - SYMBLEPHARON [None]
  - THIRST [None]
  - TONGUE DISCOLOURATION [None]
  - TOOTH DISORDER [None]
  - URETHRAL DISORDER [None]
  - VASOMOTOR RHINITIS [None]
